FAERS Safety Report 4568029-0 (Version None)
Quarter: 2005Q1

REPORT INFORMATION
  Report Type: 
  Country: None (occurrence: None)
  Receive Date: 20050128
  Receipt Date: 20050117
  Transmission Date: 20050727
  Serious: Yes (Hospitalization, Other)
  Sender: FDA-Public Use
  Company Number: HQWYE669418JAN05

PATIENT
  Age: 42 Year
  Sex: Male

DRUGS (2)
  1. EFFEXOR [Suspect]
     Indication: AGORAPHOBIA
     Dosage: 225 MG 1X PER 1 DAY ORAL
     Route: 048
     Dates: start: 20020101, end: 20041223
  2. QUILONORM (LITHIUM ACETATE,) [Suspect]
     Indication: AGORAPHOBIA
     Dosage: 450 MG 2X PER 1 DAY ORAL
     Route: 048
     Dates: end: 20041222

REACTIONS (10)
  - AGITATION [None]
  - BLINDNESS CORTICAL [None]
  - BLOOD CREATININE INCREASED [None]
  - CONVULSION [None]
  - CREATININE RENAL CLEARANCE DECREASED [None]
  - CSF PROTEIN INCREASED [None]
  - DISORIENTATION [None]
  - DISTURBANCE IN ATTENTION [None]
  - HYPERTENSIVE ENCEPHALOPATHY [None]
  - NUCLEAR MAGNETIC RESONANCE IMAGING BRAIN ABNORMAL [None]
